FAERS Safety Report 10067747 (Version 4)
Quarter: 2015Q3

REPORT INFORMATION
  Report Type: Spontaneous
  Country: US (occurrence: None)
  Receive Date: 20140311
  Receipt Date: 20150930
  Transmission Date: 20151125
  Serious: Yes (Death)
  Sender: FDA-Public Use
  Company Number: 1713747-2014-99918

PATIENT
  Age: 70 Year
  Sex: Male
  Weight: 82 kg

DRUGS (5)
  1. LIBERTY CYCLER SET [Concomitant]
     Active Substance: DEVICE
  2. VANCOMYCIN [Concomitant]
     Active Substance: VANCOMYCIN
  3. LIBERTY CYCLER [Concomitant]
     Active Substance: DEVICE
  4. CEFEPIME [Concomitant]
     Active Substance: CEFEPIME HYDROCHLORIDE
  5. DELFLEX WITH DEXTROSE 4.25% [Suspect]
     Active Substance: CALCIUM CHLORIDE\DEXTROSE MONOHYDRATE\MAGNESIUM CHLORIDE\SODIUM CHLORIDE\SODIUM LACTATE
     Indication: CHRONIC KIDNEY DISEASE
     Dosage: 12.5L OVERNIGHT CYCLING
     Dates: start: 20140108, end: 20140123

REACTIONS (7)
  - Fungal peritonitis [None]
  - Peritonitis [None]
  - Candida test positive [None]
  - Rales [None]
  - Catheter site ulcer [None]
  - Breath sounds abnormal [None]
  - Hypotension [None]

NARRATIVE: CASE EVENT DATE: 20140116
